FAERS Safety Report 7017998-8 (Version None)
Quarter: 2010Q3

REPORT INFORMATION
  Report Type: 
  Country: None (occurrence: None)
  Receive Date: 20100928
  Receipt Date: 20100915
  Transmission Date: 20110219
  Serious: Yes (Hospitalization)
  Sender: FDA-Public Use
  Company Number: PHHY2010US61809

PATIENT
  Sex: Female

DRUGS (14)
  1. EXJADE [Suspect]
     Indication: IRON OVERLOAD
     Dosage: 1750 MG DAILY
     Route: 048
  2. PHENERGAN [Concomitant]
     Dosage: 25 MG
  3. PENICILLIN V [Concomitant]
     Dosage: 250 MG
     Route: 048
  4. NEXIUM [Concomitant]
     Dosage: UNK
  5. MORPHINE [Concomitant]
  6. MS CONTIN [Concomitant]
     Dosage: UNK
  7. ZANAFLEX [Concomitant]
     Dosage: 04 MG, BID
  8. MACROBID [Concomitant]
     Dosage: 100 MG, BID
  9. HYDROXYUREA [Concomitant]
     Dosage: 500 MG
  10. FOLIC ACID [Concomitant]
     Dosage: UNK
  11. DUAL-LAX [Concomitant]
     Dosage: 02 TABS DAILY
  12. CYMBALTA [Concomitant]
     Dosage: UNK
     Route: 048
  13. AMITIZA [Concomitant]
     Dosage: UNK
     Route: 048
  14. ESTROGEN CONTRACEPTIVE PILL [Concomitant]
     Dosage: UNK

REACTIONS (5)
  - CHEST PAIN [None]
  - CONSTIPATION [None]
  - HYPOKALAEMIA [None]
  - LIVER FUNCTION TEST ABNORMAL [None]
  - PAIN IN EXTREMITY [None]
